FAERS Safety Report 11874194 (Version 1)
Quarter: 2015Q4

REPORT INFORMATION
  Report Type: Spontaneous
  Country: US (occurrence: US)
  Receive Date: 20151229
  Receipt Date: 20151229
  Transmission Date: 20160305
  Serious: Yes (Other)
  Sender: FDA-Public Use
  Company Number: US-BEH-2015056045

PATIENT
  Age: 55 Year
  Sex: Male

DRUGS (2)
  1. IVIG [Suspect]
     Active Substance: HUMAN IMMUNOGLOBULIN G
     Indication: MYELOPATHY
     Route: 042
  2. METHYLPREDNISONE [Suspect]
     Active Substance: METHYLPREDNISOLONE
     Indication: MYELOPATHY
     Dosage: PULSED

REACTIONS (2)
  - Myelopathy [Unknown]
  - Drug ineffective for unapproved indication [Unknown]
